FAERS Safety Report 4557032-2 (Version None)
Quarter: 2005Q1

REPORT INFORMATION
  Report Type: 
  Country: None (occurrence: None)
  Receive Date: 20050118
  Receipt Date: 20050606
  Transmission Date: 20050727
  Serious: No
  Sender: FDA-Public Use
  Company Number: 2005UW00360

PATIENT
  Sex: Male

DRUGS (4)
  1. CRESTOR [Suspect]
     Dosage: 10 MG QD PO
     Route: 048
  2. ALTACE [Concomitant]
  3. ASAPHEN [Concomitant]
  4. METFORMIN HCL [Concomitant]

REACTIONS (7)
  - ARTHRALGIA [None]
  - BACK PAIN [None]
  - EPISTAXIS [None]
  - FATIGUE [None]
  - MYALGIA [None]
  - NECK PAIN [None]
  - URINE ANALYSIS ABNORMAL [None]
